FAERS Safety Report 4648369-7 (Version None)
Quarter: 2005Q2

REPORT INFORMATION
  Report Type: 
  Country: None (occurrence: None)
  Receive Date: 20050427
  Receipt Date: 20050411
  Transmission Date: 20051028
  Serious: Yes (Hospitalization)
  Sender: FDA-Public Use
  Company Number: EWC050142450

PATIENT
  Age: 21 Year
  Sex: Male
  Weight: 45 kg

DRUGS (1)
  1. HUMATROPE [Suspect]
     Indication: DWARFISM
     Dosage: 2 MG/ FOUIR WEEK
     Dates: start: 20040901, end: 20050108

REACTIONS (7)
  - CEREBRAL HAEMORRHAGE [None]
  - COMA [None]
  - FALL [None]
  - GRAND MAL CONVULSION [None]
  - HEAD INJURY [None]
  - HYPONATRAEMIA [None]
  - SYNCOPE [None]
